FAERS Safety Report 10055296 (Version 3)
Quarter: 2014Q2

REPORT INFORMATION
  Report Type: Spontaneous
  Country: US (occurrence: US)
  Receive Date: 20140403
  Receipt Date: 20140526
  Transmission Date: 20141212
  Serious: Yes (Hospitalization)
  Sender: FDA-Public Use
  Company Number: US-BIOGENIDEC-2014BI027543

PATIENT
  Age: 42 Year
  Sex: Female

DRUGS (14)
  1. TYSABRI [Suspect]
     Indication: MULTIPLE SCLEROSIS
     Route: 042
     Dates: start: 20090925, end: 20140116
  2. TYSABRI [Suspect]
     Indication: MULTIPLE SCLEROSIS
     Route: 042
     Dates: start: 20131105, end: 20131105
  3. TYSABRI [Suspect]
     Indication: MULTIPLE SCLEROSIS
     Route: 042
     Dates: start: 20131210, end: 20131210
  4. TECFIDERA [Concomitant]
     Indication: MULTIPLE SCLEROSIS
     Route: 048
     Dates: start: 201311, end: 20140307
  5. ACETAMINOPHEN HYDROCODONE [Concomitant]
     Route: 048
  6. ACETAMINOPHEN HYDROCODONE [Concomitant]
     Route: 048
  7. FLEXERIL [Concomitant]
     Indication: MUSCLE SPASMS
     Route: 048
  8. VALIUM [Concomitant]
     Route: 048
  9. ESTRADIOL [Concomitant]
     Route: 048
  10. MELATONIN [Concomitant]
     Route: 048
  11. RITALIN [Concomitant]
     Route: 048
  12. ZOFRAN [Concomitant]
     Indication: NAUSEA
     Route: 048
  13. ZOFRAN [Concomitant]
     Indication: VOMITING
     Route: 048
  14. POLYETHYLENE GLYCOL 3350 [Concomitant]
     Indication: CONSTIPATION
     Route: 048

REACTIONS (1)
  - Progressive multifocal leukoencephalopathy [Not Recovered/Not Resolved]
